FAERS Safety Report 25185371 (Version 1)
Quarter: 2025Q2

REPORT INFORMATION
  Report Type: Spontaneous
  Country: GB (occurrence: GB)
  Receive Date: 20250410
  Receipt Date: 20250410
  Transmission Date: 20250717
  Serious: Yes (Other)
  Sender: ABBVIE
  Company Number: None

PATIENT
  Age: 22 Year
  Sex: Female
  Weight: 57 kg

DRUGS (1)
  1. CITALOPRAM [Suspect]
     Active Substance: CITALOPRAM
     Indication: Depression
     Route: 048

REACTIONS (4)
  - Mood altered [Not Recovered/Not Resolved]
  - Mydriasis [Not Recovered/Not Resolved]
  - Dizziness [Not Recovered/Not Resolved]
  - Nausea [Recovering/Resolving]
